FAERS Safety Report 16917296 (Version 1)
Quarter: 2019Q4

REPORT INFORMATION
  Report Type: Spontaneous
  Country: US (occurrence: US)
  Receive Date: 20191015
  Receipt Date: 20191015
  Transmission Date: 20200122
  Serious: No
  Sender: FDA-Public Use
  Company Number: US-B.I. PHARMACEUTICALS,INC./RIDGEFIELD-2019-BI-106023

PATIENT
  Age: 70 Year
  Sex: Female
  Weight: 112.03 kg

DRUGS (3)
  1. MICARDIS [Suspect]
     Active Substance: TELMISARTAN
     Indication: PRODUCT USED FOR UNKNOWN INDICATION
     Route: 065
  2. SILDENAFIL [SILDENAFIL CITRATE] [Concomitant]
     Indication: PRODUCT USED FOR UNKNOWN INDICATION
     Route: 065
  3. TYVASO [Suspect]
     Active Substance: TREPROSTINIL
     Indication: PULMONARY ARTERIAL HYPERTENSION
     Dosage: 0.6MG/ML, 3-9 BREATHS
     Route: 055
     Dates: start: 20190827

REACTIONS (7)
  - Face injury [Unknown]
  - Dizziness [Unknown]
  - Fall [Unknown]
  - Eye contusion [Unknown]
  - Joint injury [Unknown]
  - Fatigue [Unknown]
  - Musculoskeletal pain [Unknown]

NARRATIVE: CASE EVENT DATE: 20190926
